FAERS Safety Report 6142576-2 (Version None)
Quarter: 2009Q2

REPORT INFORMATION
  Report Type: 
  Country: None (occurrence: None)
  Receive Date: 20090403
  Receipt Date: 20090327
  Transmission Date: 20091009
  Serious: Yes (Other)
  Sender: FDA-Public Use
  Company Number: GB-ASTRAZENECA-2009AC00956

PATIENT
  Age: 0 Week

DRUGS (2)
  1. BUPIVACAINE [Suspect]
  2. FENTANYL-25 [Suspect]

REACTIONS (1)
  - FOETAL HEART RATE DECREASED [None]
